FAERS Safety Report 4552971-0 (Version None)
Quarter: 2005Q1

REPORT INFORMATION
  Report Type: 
  Country: None (occurrence: None)
  Receive Date: 20050113
  Receipt Date: 20050104
  Transmission Date: 20050727
  Serious: Yes (Death)
  Sender: FDA-Public Use
  Company Number: 2005AC00016

PATIENT
  Age: 58 Year
  Sex: Female

DRUGS (5)
  1. QUETIAPINE [Suspect]
     Dosage: 100 MG DAILY PO
     Route: 048
  2. METFORMIN HCL [Concomitant]
  3. RAMIPRIL [Concomitant]
  4. THYROID REPLACEMENT THERAPY [Concomitant]
  5. LITHIUM [Concomitant]

REACTIONS (22)
  - ANTINUCLEAR ANTIBODY POSITIVE [None]
  - ANURIA [None]
  - ASCITES [None]
  - BLOOD ALBUMIN DECREASED [None]
  - BLOOD CULTURE POSITIVE [None]
  - BRONCHOPNEUMONIA [None]
  - COMA [None]
  - CULTURE URINE POSITIVE [None]
  - CYSTITIS [None]
  - DEPRESSED LEVEL OF CONSCIOUSNESS [None]
  - DIABETIC NEPHROPATHY [None]
  - DRUG INEFFECTIVE [None]
  - ENCEPHALOPATHY [None]
  - FUNGAL INFECTION [None]
  - HEPATIC FAILURE [None]
  - HEPATIC NECROSIS [None]
  - HEPATITIS [None]
  - NEPHROSCLEROSIS [None]
  - PROTHROMBIN TIME PROLONGED [None]
  - PYELONEPHRITIS [None]
  - RENAL IMPAIRMENT [None]
  - STAPHYLOCOCCAL INFECTION [None]
